FAERS Safety Report 9558385 (Version 2)
Quarter: 2013Q4

REPORT INFORMATION
  Report Type: Report from Study
  Country: ID (occurrence: ID)
  Receive Date: 20130926
  Receipt Date: 20131022
  Transmission Date: 20140711
  Serious: Yes (Death, Other)
  Sender: FDA-Public Use
  Company Number: ID-ROCHE-1280363

PATIENT
  Age: 52 Year
  Sex: Female
  Weight: 30 kg

DRUGS (1)
  1. RITUXIMAB [Suspect]
     Indication: B-CELL LYMPHOMA
     Route: 042
     Dates: start: 20130909

REACTIONS (3)
  - Renal failure acute [Fatal]
  - Death [Fatal]
  - Diarrhoea [Recovered/Resolved]
